FAERS Safety Report 20509286 (Version 1)
Quarter: 2022Q1

REPORT INFORMATION
  Report Type: Spontaneous
  Country: ES (occurrence: ES)
  Receive Date: 20220223
  Receipt Date: 20220223
  Transmission Date: 20220423
  Serious: Yes (Life-Threatening, Hospitalization, Other)
  Sender: FDA-Public Use
  Company Number: ES-SUN PHARMACEUTICAL INDUSTRIES LTD-2022RR-327925

PATIENT
  Age: 84 Year
  Sex: Female
  Weight: 62 kg

DRUGS (7)
  1. OXALIPLATIN [Suspect]
     Active Substance: OXALIPLATIN
     Indication: Colon cancer metastatic
     Dosage: 150 MILLIGRAM, IN TOTAL
     Route: 042
     Dates: start: 20220131, end: 20220131
  2. MOTILIUM 10 mg COMPRIMIDOS RECUBIERTOS CON PELICULA, 30 comprimidos [Concomitant]
     Indication: Product used for unknown indication
     Dosage: UNK
     Route: 065
  3. FEROGRADUMET [Concomitant]
     Indication: Product used for unknown indication
     Dosage: UNK
     Route: 065
  4. VOLTAREN 50 mg COMPRIMIDOS GASTRORRESISTENTES , 40 comprimidos [Concomitant]
     Indication: Product used for unknown indication
     Dosage: UNK
     Route: 065
  5. Omeprazol 20 mg 28 capsulas [Concomitant]
     Indication: Product used for unknown indication
     Dosage: UNK
     Route: 065
  6. MASTICALD [Concomitant]
     Indication: Product used for unknown indication
     Dosage: UNK
     Route: 065
  7. DEXAMETHASONE [Concomitant]
     Active Substance: DEXAMETHASONE
     Indication: Product used for unknown indication
     Dosage: UNK
     Route: 065

REACTIONS (1)
  - Stridor [Recovered/Resolved]

NARRATIVE: CASE EVENT DATE: 20220131
